FAERS Safety Report 8049272-5 (Version None)
Quarter: 2012Q1

REPORT INFORMATION
  Report Type: 
  Country: None (occurrence: None)
  Receive Date: 20120117
  Receipt Date: 20120113
  Transmission Date: 20120608
  Serious: Yes (Other)
  Sender: FDA-Public Use
  Company Number: US-ROCHE-1030284

PATIENT
  Sex: Female

DRUGS (4)
  1. ACCUTANE [Suspect]
     Indication: PRODUCT USED FOR UNKNOWN INDICATION
     Dates: start: 19990101, end: 20020101
  2. AMNESTEEM [Suspect]
     Indication: ACNE
     Dates: start: 19990101, end: 20020101
  3. CLARAVIS [Suspect]
     Indication: ACNE
     Dates: start: 19990101, end: 20020101
  4. SOTRET [Suspect]
     Indication: ACNE
     Dates: start: 19990101, end: 20020101

REACTIONS (2)
  - ANXIETY [None]
  - INFLAMMATORY BOWEL DISEASE [None]
